FAERS Safety Report 17963772 (Version 2)
Quarter: 2024Q3

REPORT INFORMATION
  Report Type: Report from Study
  Country: BR (occurrence: BR)
  Receive Date: 20200630
  Receipt Date: 20240802
  Transmission Date: 20241016
  Serious: Yes (Other)
  Sender: JOHNSON AND JOHNSON
  Company Number: BR-JNJFOC-20200521529

PATIENT
  Age: 46 Year
  Sex: Female
  Weight: 82 kg

DRUGS (1)
  1. REMICADE [Suspect]
     Active Substance: INFLIXIMAB
     Indication: Ankylosing spondylitis
     Dosage: THERAPY START DATE ALSO REPORTED AS 29-APR-2020
     Route: 041
     Dates: start: 20200415, end: 2023

REACTIONS (4)
  - Arrhythmia [Not Recovered/Not Resolved]
  - Dengue fever [Unknown]
  - Amnesia [Unknown]
  - Coronavirus infection [Not Recovered/Not Resolved]

NARRATIVE: CASE EVENT DATE: 20200502
